FAERS Safety Report 10206240 (Version 1)
Quarter: 2014Q2

REPORT INFORMATION
  Report Type: Spontaneous
  Country: US (occurrence: None)
  Receive Date: 20140527
  Receipt Date: 20140527
  Transmission Date: 20141212
  Serious: Yes (Other)
  Sender: FDA-Public Use
  Company Number: None

PATIENT
  Age: 88 Year
  Sex: Male
  Weight: 101.61 kg

DRUGS (1)
  1. ZYTIGA 250MG [Suspect]
     Dosage: OTHER

REACTIONS (2)
  - Peripheral embolism [None]
  - Varicose vein [None]
